FAERS Safety Report 19829301 (Version 1)
Quarter: 2021Q3

REPORT INFORMATION
  Report Type: Spontaneous
  Country: JP (occurrence: JP)
  Receive Date: 20210914
  Receipt Date: 20210914
  Transmission Date: 20211014
  Serious: Yes (Death, Other)
  Sender: FDA-Public Use
  Company Number: JP-UCBSA-2021041979

PATIENT
  Age: 91 Year
  Sex: Male

DRUGS (4)
  1. FOSTOIN [Concomitant]
     Active Substance: FOSPHENYTOIN SODIUM
     Indication: PRODUCT USED FOR UNKNOWN INDICATION
     Dosage: UNK
     Dates: start: 20210824, end: 20210824
  2. FOSTOIN [Concomitant]
     Active Substance: FOSPHENYTOIN SODIUM
     Dosage: UNK
     Dates: start: 20210828
  3. E KEPPRA [Suspect]
     Active Substance: LEVETIRACETAM
     Indication: EPILEPSY
     Dosage: 500 MILLIGRAM, 2X/DAY (BID)
     Route: 041
     Dates: start: 20210828, end: 20210830
  4. DIAZEPAM. [Concomitant]
     Active Substance: DIAZEPAM
     Indication: PRODUCT USED FOR UNKNOWN INDICATION
     Dosage: UNK
     Dates: start: 20210824, end: 20210824

REACTIONS (3)
  - Cerebral infarction [Fatal]
  - Lung neoplasm malignant [Fatal]
  - Seizure [Unknown]

NARRATIVE: CASE EVENT DATE: 20210830
